FAERS Safety Report 26126919 (Version 1)
Quarter: 2025Q4

REPORT INFORMATION
  Report Type: Spontaneous
  Country: US (occurrence: US)
  Receive Date: 20251205
  Receipt Date: 20251205
  Transmission Date: 20260117
  Serious: No
  Sender: NOVO NORDISK
  Company Number: US-NOVOPROD-1546157

PATIENT
  Age: 68 Year
  Sex: Female

DRUGS (2)
  1. NOVOLIN 70/30 [Suspect]
     Active Substance: INSULIN HUMAN
     Indication: Type 2 diabetes mellitus
     Dosage: 16 IU, QD
     Route: 058
     Dates: start: 202510
  2. LANTUS [Concomitant]
     Active Substance: INSULIN GLARGINE
     Indication: Product used for unknown indication
     Dosage: UNK

REACTIONS (5)
  - Blood pressure abnormal [Unknown]
  - Headache [Unknown]
  - Illness [Unknown]
  - Product label issue [Unknown]
  - Wrong technique in product usage process [Unknown]
